FAERS Safety Report 6612820-3 (Version None)
Quarter: 2010Q1

REPORT INFORMATION
  Report Type: 
  Country: None (occurrence: None)
  Receive Date: 20100303
  Receipt Date: 20090524
  Transmission Date: 20100710
  Serious: No
  Sender: FDA-Public Use
  Company Number: US-ABBOTT-09P-163-0576261-00

PATIENT
  Sex: Male

DRUGS (1)
  1. BIAXIN XL [Suspect]
     Indication: BRONCHITIS

REACTIONS (1)
  - EMOTIONAL DISORDER [None]
